FAERS Safety Report 5923312-9 (Version None)
Quarter: 2008Q4

REPORT INFORMATION
  Report Type: 
  Country: None (occurrence: None)
  Receive Date: 20081015
  Receipt Date: 20080929
  Transmission Date: 20090506
  Serious: No
  Sender: FDA-Public Use
  Company Number: 238867J08USA

PATIENT
  Age: 65 Year
  Sex: Female
  Weight: 74 kg

DRUGS (9)
  1. REBIF [Suspect]
     Indication: MULTIPLE SCLEROSIS
     Dosage: 44 MCG, 3 IN  WEEKS, SUBCUTANEOUS
     Route: 058
     Dates: start: 20070831
  2. ADVIL [Concomitant]
  3. BENADRYL [Concomitant]
  4. DIAZEPAM [Concomitant]
  5. CALCIUM WITH VITAMIN D (CALCIUM WITH VITAMIN D) [Concomitant]
  6. MULTIVITAMIN [Concomitant]
  7. FLAX SEED (LINUM USITATISSIMUM SEED OIL) [Concomitant]
  8. CINNAMON PILLS (CINNAMOMUM VERUM) [Concomitant]
  9. LISINOPRIL (LISINOPROL /00894001/) [Concomitant]

REACTIONS (1)
  - DEPRESSION [None]
